FAERS Safety Report 21597487 (Version 1)
Quarter: 2022Q4

REPORT INFORMATION
  Report Type: Spontaneous
  Country: US (occurrence: US)
  Receive Date: 20221115
  Receipt Date: 20221115
  Transmission Date: 20230113
  Serious: No
  Sender: FDA-Public Use
  Company Number: US-AMNEAL PHARMACEUTICALS-2022-AMRX-02095

PATIENT
  Sex: Female
  Weight: 63.039 kg

DRUGS (1)
  1. ISOTRETINOIN [Suspect]
     Active Substance: ISOTRETINOIN
     Indication: Acne
     Dosage: 30 MG ORAL CAPSULE
     Route: 048
     Dates: start: 202204, end: 202206

REACTIONS (1)
  - Anxiety [Recovered/Resolved]
